FAERS Safety Report 10659438 (Version 1)
Quarter: 2014Q4

REPORT INFORMATION
  Report Type: Spontaneous
  Country: US (occurrence: None)
  Receive Date: 20141216
  Receipt Date: 20141216
  Transmission Date: 20150529
  Serious: Yes (Other)
  Sender: FDA-Public Use
  Company Number: None

PATIENT
  Age: 22 Year
  Sex: Female
  Weight: 48.54 kg

DRUGS (18)
  1. CLONIDINE. [Concomitant]
     Active Substance: CLONIDINE
  2. NEXPLANON [Concomitant]
     Active Substance: ETONOGESTREL
  3. BONE MAXIMIZER [Concomitant]
  4. CRANBERRY SOFT GEL [Concomitant]
  5. ESCITALOPRAM [Concomitant]
     Active Substance: ESCITALOPRAM OXALATE
  6. DICLOFENAC [Concomitant]
     Active Substance: DICLOFENAC
  7. OMEGA 3-6-9 BLEND [Concomitant]
  8. VALACYCLOVIR [Concomitant]
     Active Substance: VALACYCLOVIR HYDROCHLORIDE
  9. PARAFONTON [Concomitant]
  10. PARAFON FORTE [Concomitant]
     Active Substance: CHLORZOXAZONE
  11. VYVANSE [Concomitant]
     Active Substance: LISDEXAMFETAMINE DIMESYLATE
  12. METOCLOPRAMIDE. [Concomitant]
     Active Substance: METOCLOPRAMIDE
  13. NATURE^S WAY ALIVE WOMENS MUITI [Concomitant]
  14. TRAZODONE [Suspect]
     Active Substance: TRAZODONE HYDROCHLORIDE
     Indication: SLEEP DISORDER
     Dosage: 50MG PER TAB ?1-2 PILLS AT BEDTIME ?AT BEDTIME ?BY MOUTH
     Route: 048
     Dates: start: 20140910, end: 20141020
  15. LYRICA [Concomitant]
     Active Substance: PREGABALIN
  16. LORATADINE. [Concomitant]
     Active Substance: LORATADINE
  17. HYOMAX-FT [Concomitant]
  18. D3 [Concomitant]
     Active Substance: 25-HYDROXYCHOLECALCIFEROL, 5-TRANS-

REACTIONS (8)
  - Uterine contractions abnormal [None]
  - Disturbance in sexual arousal [None]
  - Activities of daily living impaired [None]
  - Genital paraesthesia [None]
  - Vulvovaginal pain [None]
  - Drug ineffective [None]
  - Nausea [None]
  - Clitoral engorgement [None]

NARRATIVE: CASE EVENT DATE: 20140910
